FAERS Safety Report 6167614-2 (Version None)
Quarter: 2009Q2

REPORT INFORMATION
  Report Type: 
  Country: None (occurrence: None)
  Receive Date: 20090424
  Receipt Date: 20090414
  Transmission Date: 20091009
  Serious: Yes (Hospitalization, Disabling)
  Sender: FDA-Public Use
  Company Number: FR-AMGEN-US341357

PATIENT
  Sex: Female
  Weight: 60 kg

DRUGS (18)
  1. ENBREL [Suspect]
     Indication: ANKYLOSING SPONDYLITIS
     Route: 058
     Dates: start: 20071116, end: 20080626
  2. ACETAMINOPHEN AND CODEINE PHOSPHATE [Concomitant]
     Indication: PAIN
     Route: 048
     Dates: start: 20080101
  3. DICLOFENAC [Concomitant]
     Dosage: 50 MG TOTAL DAILY
     Route: 048
  4. DI-ANTALVIC [Concomitant]
     Route: 048
  5. DI-ANTALVIC [Concomitant]
     Route: 048
     Dates: end: 20080101
  6. FERROUS SULFATE TAB [Concomitant]
     Route: 048
     Dates: end: 20080101
  7. MAG 2 [Concomitant]
     Dosage: 3 TABLETS TOTAL DAILY
     Route: 048
  8. GAVISCON [Concomitant]
     Indication: ABDOMINAL PAIN UPPER
     Dosage: UNKNOWN DOSE, IF NECESSARY
     Route: 065
  9. OMEPRAZOLE [Concomitant]
     Route: 065
  10. CORTANCYL [Concomitant]
     Dosage: 10 MG 2 TIMES PER DAY FOR 2 WEEKS AND THEN PROGRESSIVE WITHDRAWAL
     Route: 065
     Dates: start: 20080901, end: 20081001
  11. FORLAX [Concomitant]
     Route: 065
     Dates: start: 20080101, end: 20080101
  12. TOPALGIC [Concomitant]
     Route: 048
     Dates: start: 20080101, end: 20080101
  13. TOPALGIC [Concomitant]
     Route: 048
     Dates: start: 20080101, end: 20090101
  14. DAFLON [Concomitant]
     Dosage: 500 TO 1000 MG TOTAL DAILY
     Route: 065
     Dates: start: 20080101, end: 20080101
  15. RHINOFLUIMUCIL [Concomitant]
     Route: 065
     Dates: start: 20080101, end: 20080101
  16. HELICIDINE [Concomitant]
     Dosage: 2 TBSP EVERY 1 DAY
     Route: 048
     Dates: start: 20080101, end: 20080101
  17. SOLU-MEDROL [Concomitant]
     Dosage: ONE BOLUS OF 250 MG
     Route: 042
     Dates: start: 20081001, end: 20081001
  18. ACETAMINOPHEN [Concomitant]
     Indication: PAIN
     Route: 048
     Dates: start: 20080101

REACTIONS (5)
  - ANKYLOSING SPONDYLITIS [None]
  - ASSISTED DELIVERY [None]
  - CONDITION AGGRAVATED [None]
  - DELAYED DELIVERY [None]
  - DRUG EXPOSURE DURING PREGNANCY [None]
